FAERS Safety Report 24537902 (Version 1)
Quarter: 2024Q4

REPORT INFORMATION
  Report Type: Spontaneous
  Country: US (occurrence: US)
  Receive Date: 20241023
  Receipt Date: 20241023
  Transmission Date: 20250115
  Serious: No
  Sender: MANKIND PHARMA
  Company Number: US-MankindUS-000239

PATIENT
  Age: 62 Year
  Sex: Male

DRUGS (1)
  1. ATROPINE SULFATE [Suspect]
     Active Substance: ATROPINE SULFATE
     Indication: Product used for unknown indication
     Dosage: 1% OPHTHALMIC SOLUTION 2ML
     Dates: start: 202309

REACTIONS (2)
  - Product dose omission issue [Unknown]
  - Product use issue [Unknown]
